FAERS Safety Report 22006016 (Version 1)
Quarter: 2023Q1

REPORT INFORMATION
  Report Type: Spontaneous
  Country: CN (occurrence: CN)
  Receive Date: 20230217
  Receipt Date: 20230217
  Transmission Date: 20230418
  Serious: Yes (Other)
  Sender: FDA-Public Use
  Company Number: CN-PFIZER INC-202300067518

PATIENT
  Age: 73 Year
  Sex: Female
  Weight: 55 kg

DRUGS (4)
  1. MEROPENEM [Suspect]
     Active Substance: MEROPENEM
     Indication: CNS ventriculitis
     Dosage: 2 G, 3X/DAY(Q8H)
     Route: 041
  2. MEROPENEM [Suspect]
     Active Substance: MEROPENEM
     Indication: Infection
  3. COLISTIN SULFATE [Suspect]
     Active Substance: COLISTIN SULFATE
     Indication: CNS ventriculitis
     Dosage: 50 MG, 2X/DAY (Q12H)
     Route: 041
  4. COLISTIN SULFATE [Suspect]
     Active Substance: COLISTIN SULFATE
     Indication: Infection

REACTIONS (2)
  - Neurotoxicity [Unknown]
  - Drug ineffective [Unknown]
